FAERS Safety Report 12558650 (Version 2)
Quarter: 2016Q3

REPORT INFORMATION
  Report Type: Report from Study
  Country: US (occurrence: US)
  Receive Date: 20160715
  Receipt Date: 20160728
  Transmission Date: 20161109
  Serious: No
  Sender: FDA-Public Use
  Company Number: US-AMGEN-USASL2016089956

PATIENT
  Age: 72 Year
  Sex: Female

DRUGS (1)
  1. ENBREL [Suspect]
     Active Substance: ETANERCEPT
     Indication: PSORIASIS
     Dosage: 50 MG, UNK
     Route: 065
     Dates: start: 20151125, end: 20160327

REACTIONS (5)
  - Psoriasis [Not Recovered/Not Resolved]
  - Diplopia [Unknown]
  - Feeling abnormal [Unknown]
  - Balance disorder [Unknown]
  - Visual impairment [Unknown]

NARRATIVE: CASE EVENT DATE: 2016
